FAERS Safety Report 7057701-9 (Version None)
Quarter: 2010Q4

REPORT INFORMATION
  Report Type: 
  Country: None (occurrence: None)
  Receive Date: 20101022
  Receipt Date: 20101021
  Transmission Date: 20110411
  Serious: Yes (Other)
  Sender: FDA-Public Use
  Company Number: CA-SP-2010-06066

PATIENT
  Sex: Female

DRUGS (1)
  1. TUBERCULIN NOS [Suspect]
     Indication: TUBERCULIN TEST
     Dosage: NOT REPORTED
     Route: 065

REACTIONS (1)
  - ANAPHYLACTIC REACTION [None]
